FAERS Safety Report 6478181-8 (Version None)
Quarter: 2009Q4

REPORT INFORMATION
  Report Type: 
  Country: None (occurrence: None)
  Receive Date: 20091202
  Receipt Date: 20091117
  Transmission Date: 20100525
  Serious: Yes (Other)
  Sender: FDA-Public Use
  Company Number: 1000010211

PATIENT

DRUGS (4)
  1. CARBAMAZEPINE [Suspect]
     Dosage: 400 MG  (200 MG, 2 IN 1 D)
  2. ARIPIPRAZOLE [Suspect]
     Dosage: 24 MG  (24 MG)
  3. BIPERIDEN HYDROCHLORIDE TAB [Concomitant]
  4. FLUNITRAZEPAM [Concomitant]

REACTIONS (7)
  - ASTHENIA [None]
  - DISTURBANCE IN ATTENTION [None]
  - DRUG INTERACTION [None]
  - DRUG LEVEL DECREASED [None]
  - ORTHOSTATIC HYPOTENSION [None]
  - PALPITATIONS [None]
  - SOMNOLENCE [None]
